FAERS Safety Report 11574675 (Version 1)
Quarter: 2015Q3

REPORT INFORMATION
  Report Type: Spontaneous
  Country: US (occurrence: None)
  Receive Date: 20150929
  Receipt Date: 20150929
  Transmission Date: 20151125
  Serious: No
  Sender: FDA-Public Use
  Company Number: None

PATIENT
  Age: 67 Year
  Sex: Male
  Weight: 88.45 kg

DRUGS (6)
  1. NUCYNTA [Suspect]
     Active Substance: TAPENTADOL HYDROCHLORIDE
     Indication: NECK PAIN
     Route: 048
     Dates: start: 20150924, end: 20150924
  2. TYLENOL [Concomitant]
     Active Substance: ACETAMINOPHEN
  3. NUCYNTA [Suspect]
     Active Substance: TAPENTADOL HYDROCHLORIDE
     Indication: BACK PAIN
     Route: 048
     Dates: start: 20150924, end: 20150924
  4. ALEVE [Concomitant]
     Active Substance: NAPROXEN SODIUM
  5. TAMSULOSIN [Concomitant]
     Active Substance: TAMSULOSIN
  6. CRESTOR [Concomitant]
     Active Substance: ROSUVASTATIN CALCIUM

REACTIONS (3)
  - Dizziness [None]
  - Disorientation [None]
  - Nausea [None]

NARRATIVE: CASE EVENT DATE: 20150924
